FAERS Safety Report 4553648-8 (Version None)
Quarter: 2004Q4

REPORT INFORMATION
  Report Type: 
  Country: None (occurrence: None)
  Receive Date: 20041227
  Receipt Date: 20041020
  Transmission Date: 20050328
  Serious: No
  Sender: FDA-Public Use
  Company Number: 04P-163-0278092-00

PATIENT
  Age: 73 Year
  Sex: Female
  Weight: 85.2762 kg

DRUGS (16)
  1. HUMIRA [Suspect]
     Indication: RHEUMATOID ARTHRITIS
     Dosage: 40 MG, 1 IN 2 WK, SUBCUTANEOUS
     Route: 058
     Dates: start: 20010603
  2. CALCINOTIN, SALMON [Concomitant]
  3. SULFASALAZINE [Concomitant]
  4. PREDNISONE [Concomitant]
  5. PROPAFENONE HCL [Concomitant]
  6. VERAPAMIL [Concomitant]
  7. VALSARTAN [Concomitant]
  8. MULTI-VITAMINS [Concomitant]
  9. GLIMEPIRIDE [Concomitant]
  10. FUROSEMIDE [Concomitant]
  11. TOCOPHEROL CONCENTRATE CAP [Concomitant]
  12. RETINOL [Concomitant]
  13. CALCIUM CARBONATE [Concomitant]
  14. ALPHAGAN P [Concomitant]
  15. POTASSIUM CHLORIDE [Concomitant]
  16. ASPIRIN [Concomitant]

REACTIONS (2)
  - EPISTAXIS [None]
  - PAIN [None]
